FAERS Safety Report 19748147 (Version 1)
Quarter: 2021Q3

REPORT INFORMATION
  Report Type: Spontaneous
  Country: GB (occurrence: GB)
  Receive Date: 20210826
  Receipt Date: 20210826
  Transmission Date: 20211014
  Serious: Yes (Death, Other)
  Sender: FDA-Public Use
  Company Number: GB-AMGEN-GBRNI2020212029

PATIENT
  Age: 55 Year
  Sex: Female

DRUGS (73)
  1. PACLITAXEL. [Suspect]
     Active Substance: PACLITAXEL
     Dosage: 375 MILLIGRAM, Q3WK
     Route: 042
     Dates: start: 20170705, end: 20170726
  2. TRASTUZUMAB EMTANSINE [Suspect]
     Active Substance: ADO-TRASTUZUMAB EMTANSINE
     Dosage: 160 MILLIGRAM, Q3WK
     Route: 042
     Dates: start: 20190829, end: 20200326
  3. ABRAXANE [Suspect]
     Active Substance: PACLITAXEL
     Indication: BREAST CANCER
     Dosage: 300 MILLIGRAM, Q3WK
     Route: 042
     Dates: start: 20170816, end: 20170906
  4. ABRAXANE [Suspect]
     Active Substance: PACLITAXEL
     Dosage: 275 MILLIGRAM, Q3WK
     Route: 042
     Dates: start: 20170705, end: 20170726
  5. AZTREONAM. [Concomitant]
     Active Substance: AZTREONAM
     Indication: BILIARY SEPSIS
     Dosage: UNK
     Route: 042
     Dates: start: 20201028
  6. DOMPERIDONE [Concomitant]
     Active Substance: DOMPERIDONE
     Dosage: 10 MILLIGRAM, 0.33 DAY
     Route: 048
     Dates: start: 20170523
  7. ERTAPENEM. [Concomitant]
     Active Substance: ERTAPENEM SODIUM
     Indication: CLOSTRIDIUM DIFFICILE INFECTION
     Dosage: 1 GRAM
     Route: 042
     Dates: start: 20201104, end: 20201111
  8. CIPROFLOXACIN. [Concomitant]
     Active Substance: CIPROFLOXACIN
     Dosage: 500 MILLIGRAM, BID, 0.5 DAY
     Route: 048
     Dates: start: 20200823, end: 20200828
  9. TEICOPLANIN [Concomitant]
     Active Substance: TEICOPLANIN
     Dosage: UNK
     Route: 042
     Dates: start: 20201028
  10. TRASTUZUMAB. [Suspect]
     Active Substance: TRASTUZUMAB
     Dosage: 378 MILLIGRAM, Q3WK
     Route: 041
     Dates: start: 20180516, end: 20190327
  11. TRASTUZUMAB. [Suspect]
     Active Substance: TRASTUZUMAB
     Dosage: 200 MILLIGRAM, Q3WK
     Route: 042
     Dates: start: 20190427, end: 20190606
  12. BLOOD, WHOLE [Concomitant]
     Active Substance: WHOLE BLOOD
     Indication: DUODENAL ULCER
     Dosage: 2 UNITS
     Route: 042
     Dates: start: 20201112, end: 20201112
  13. PARACETAMOL [Concomitant]
     Active Substance: ACETAMINOPHEN
     Dosage: UNK, AS PER REQUIRED.
     Route: 048
     Dates: start: 20170525
  14. AMIKACIN. [Concomitant]
     Active Substance: AMIKACIN
     Indication: BILIARY SEPSIS
     Dosage: UNK
     Route: 042
     Dates: start: 20200504, end: 20200504
  15. FUSIDIC ACID [Concomitant]
     Active Substance: FUSIDIC ACID
     Dosage: UNK
     Dates: start: 201905
  16. CLOBETASOL PROPIONATE. [Concomitant]
     Active Substance: CLOBETASOL PROPIONATE
     Dosage: UNK, BID, 0.5 DAY
     Route: 061
     Dates: start: 20170210
  17. MEROPENEM. [Concomitant]
     Active Substance: MEROPENEM
     Indication: PYREXIA
     Dosage: UNK
  18. AMOXICILLIN. [Concomitant]
     Active Substance: AMOXICILLIN
     Indication: PYREXIA
     Dosage: 625 MILLIGRAM, TID
     Route: 048
     Dates: start: 20201211, end: 20201216
  19. AMOXICILLIN. [Concomitant]
     Active Substance: AMOXICILLIN
     Indication: ABDOMINAL PAIN
  20. TRASTUZUMAB. [Suspect]
     Active Substance: TRASTUZUMAB
     Dosage: 160 MILLIGRAM, Q3WK
     Route: 042
     Dates: start: 20190829
  21. PACLITAXEL. [Suspect]
     Active Substance: PACLITAXEL
     Dosage: 275 MILLIGRAM, Q3WK
     Route: 042
     Dates: start: 20170715
  22. TRASTUZUMAB EMTANSINE [Suspect]
     Active Substance: ADO-TRASTUZUMAB EMTANSINE
     Dosage: 200 MILLIGRAM, Q3WK
     Route: 042
     Dates: start: 20190627, end: 20190718
  23. DOCETAXEL. [Suspect]
     Active Substance: DOCETAXEL
     Indication: BREAST CANCER
     Dosage: 130 MILLIGRAM, Q3WK
     Route: 042
     Dates: start: 20170525, end: 20170525
  24. ABRAXANE [Suspect]
     Active Substance: PACLITAXEL
     Dosage: 450 MILLIGRAM, Q3WK
     Route: 042
     Dates: start: 20170614, end: 20170614
  25. OMEPRAZOLE. [Concomitant]
     Active Substance: OMEPRAZOLE
     Indication: DUODENAL ULCER
     Dosage: 40 MILLIGRAM, BID, 0.5 DAY
     Route: 048
     Dates: start: 20201113, end: 20210205
  26. CIPROFLOXACIN. [Concomitant]
     Active Substance: CIPROFLOXACIN
     Dosage: UNK UNK, BID, 0.5 DAY
     Route: 048
     Dates: start: 20200707, end: 202007
  27. TEICOPLANIN [Concomitant]
     Active Substance: TEICOPLANIN
     Indication: BILIARY SEPSIS
     Dosage: UNK
     Route: 042
     Dates: start: 20200925, end: 20200925
  28. NERATINIB [Concomitant]
     Active Substance: NERATINIB
     Dosage: 240 MILLIGRAM, QD
     Route: 048
     Dates: start: 20200919, end: 20201104
  29. MEROPENEM. [Concomitant]
     Active Substance: MEROPENEM
     Indication: BILIARY SEPSIS
     Dosage: 2 GRAM, TID, 0.33 DAY
     Route: 042
     Dates: start: 20200502, end: 20200515
  30. TRASTUZUMAB. [Suspect]
     Active Substance: TRASTUZUMAB
     Indication: BREAST CANCER
     Dosage: 525 MILLIGRAM, Q3WK, LOADING DOSE
     Route: 042
     Dates: start: 20170524, end: 20170524
  31. PACLITAXEL. [Suspect]
     Active Substance: PACLITAXEL
     Indication: HER2 POSITIVE BREAST CANCER
     Dosage: 450 MILLIGRAM, Q3WK
     Route: 042
     Dates: start: 20170614, end: 20170614
  32. PERTUZUMAB. [Suspect]
     Active Substance: PERTUZUMAB
     Dosage: 420 MILLIGRAM, Q3WK
     Route: 042
     Dates: start: 20170614, end: 20190327
  33. HALAVEN [Concomitant]
     Active Substance: ERIBULIN MESYLATE
     Indication: BREAST CANCER
     Dosage: 1.85 MILLIGRAM
     Route: 042
     Dates: start: 20200611, end: 20200820
  34. TINZAPARIN [Concomitant]
     Active Substance: TINZAPARIN
     Dosage: UNK
     Route: 058
     Dates: start: 20170713, end: 20170723
  35. CIPROFLOXACIN. [Concomitant]
     Active Substance: CIPROFLOXACIN
     Indication: CHOLECYSTITIS ACUTE
     Dosage: 500 MILLIGRAM, BID
     Route: 048
     Dates: start: 20200909, end: 20200916
  36. CIPROFLOXACIN. [Concomitant]
     Active Substance: CIPROFLOXACIN
     Indication: PYREXIA
     Dosage: 250 MILLIGRAM, BID
     Route: 048
     Dates: start: 20200726, end: 20200801
  37. METRONIDAZOLE. [Concomitant]
     Active Substance: METRONIDAZOLE
     Indication: ABDOMINAL PAIN UPPER
     Dosage: UNK
     Route: 042
     Dates: start: 20200630, end: 20200709
  38. APIXABAN [Concomitant]
     Active Substance: APIXABAN
     Dosage: UNK
  39. DOCETAXEL. [Suspect]
     Active Substance: DOCETAXEL
     Indication: HER2 POSITIVE BREAST CANCER
  40. TRANEXAMIC ACID. [Concomitant]
     Active Substance: TRANEXAMIC ACID
     Indication: DUODENAL ULCER
     Dosage: 1 GRAM
     Route: 048
     Dates: start: 20201112
  41. SANDO K [POTASSIUM BICARBONATE;POTASSIUM CHLORIDE] [Concomitant]
     Active Substance: POTASSIUM BICARBONATE\POTASSIUM CHLORIDE
     Dosage: UNK, 0.5 DAY
     Route: 048
     Dates: start: 20170525
  42. AMITRIPTYLINE HYDROCHLORIDE. [Concomitant]
     Active Substance: AMITRIPTYLINE HYDROCHLORIDE
     Indication: DEPRESSED MOOD
     Dosage: 5 MILLIGRAM, QD
     Route: 048
     Dates: start: 20190827
  43. FLUCLOXACILLIN [Concomitant]
     Active Substance: FLUCLOXACILLIN
     Indication: FOLLICULITIS
     Dosage: UNK
     Route: 048
     Dates: start: 20190122
  44. TRASTUZUMAB. [Suspect]
     Active Substance: TRASTUZUMAB
     Dosage: 200 MILLIGRAM, Q3WK
     Route: 042
     Dates: start: 20190627, end: 20190718
  45. TINZAPARIN [Concomitant]
     Active Substance: TINZAPARIN
     Indication: THROMBOSIS
     Dosage: UNK UNK, QD
     Route: 058
     Dates: start: 20190916
  46. CEFTRIAXONE. [Concomitant]
     Active Substance: CEFTRIAXONE
     Indication: BILIARY SEPSIS
     Dosage: 250 MILLIGRAM, BID
     Route: 048
     Dates: start: 20200928, end: 20201012
  47. VANCOMYCIN [Concomitant]
     Active Substance: VANCOMYCIN
     Dosage: 500 MILLIGRAM, QID, 0.25 DAY
     Route: 048
     Dates: start: 20201104, end: 20201113
  48. ZOLEDRONIC ACID [Concomitant]
     Active Substance: ZOLEDRONIC ACID
     Dosage: 4 MILLIGRAM, Q4WK, ONCE IN EVERY 3 TO4 WEEKS.
     Route: 042
     Dates: start: 20170525
  49. METRONIDAZOLE. [Concomitant]
     Active Substance: METRONIDAZOLE
     Indication: DUODENAL ULCER
     Dosage: 400 MILLIGRAM, QMO
     Route: 048
     Dates: start: 20201116, end: 202011
  50. TEICOPLANIN [Concomitant]
     Active Substance: TEICOPLANIN
     Dosage: UNK
     Route: 042
     Dates: start: 20200502, end: 20200515
  51. TRASTUZUMAB. [Suspect]
     Active Substance: TRASTUZUMAB
     Indication: HER2 POSITIVE BREAST CANCER
     Dosage: 400 MILLIGRAM, Q3WK
     Route: 042
     Dates: start: 20170614, end: 20180425
  52. AZTREONAM. [Concomitant]
     Active Substance: AZTREONAM
     Dosage: UNK
     Route: 042
     Dates: start: 20200925, end: 20200925
  53. ERTAPENEM. [Concomitant]
     Active Substance: ERTAPENEM SODIUM
     Indication: BILIARY SEPSIS
     Dosage: 1 GRAM
     Route: 042
     Dates: start: 20200501, end: 20200502
  54. CETIRIZINE [Concomitant]
     Active Substance: CETIRIZINE HYDROCHLORIDE
     Indication: PUSTULE
     Dosage: UNK UNK, QD
     Route: 048
     Dates: start: 20190313
  55. CEFUROXIME. [Concomitant]
     Active Substance: CEFUROXIME
     Indication: BILIARY SEPSIS
     Dosage: 250 MILLIGRAM, BID, 0.5 DAY
     Route: 048
     Dates: start: 20200925, end: 20201009
  56. CIPROFLOXACIN. [Concomitant]
     Active Substance: CIPROFLOXACIN
     Dosage: 500 MILLIGRAM, BID
     Route: 048
     Dates: start: 20200815, end: 20200819
  57. CHLORPHENAMINE [Concomitant]
     Active Substance: CHLORPHENIRAMINE MALEATE
     Dosage: UNK, QID
     Route: 048
     Dates: start: 20170526
  58. METRONIDAZOLE. [Concomitant]
     Active Substance: METRONIDAZOLE
     Indication: CHOLECYSTITIS ACUTE
     Dosage: UNK
     Dates: start: 20200909, end: 20200914
  59. CALCICHEW D3 FORTE [Concomitant]
     Active Substance: CALCIUM\CHOLECALCIFEROL
     Dosage: UNK, TID
     Route: 048
     Dates: start: 20170525
  60. CHLORHEXIDINE GLUCONATE. [Concomitant]
     Active Substance: CHLORHEXIDINE GLUCONATE
     Dosage: UNK, QID
     Route: 061
     Dates: start: 20170525
  61. IKERVIS [Concomitant]
     Active Substance: CYCLOSPORINE
     Indication: BLEPHARITIS
     Dosage: UNK
     Route: 047
     Dates: start: 201708
  62. PACLITAXEL. [Suspect]
     Active Substance: PACLITAXEL
     Indication: BREAST CANCER
     Dosage: 300 MILLIGRAM, Q3WK
     Route: 042
     Dates: start: 20170816, end: 20170906
  63. TRASTUZUMAB EMTANSINE [Suspect]
     Active Substance: ADO-TRASTUZUMAB EMTANSINE
     Indication: BREAST CANCER
     Dosage: 240 MILLIGRAM, Q3WK
     Route: 042
     Dates: start: 20190427, end: 20190606
  64. PERTUZUMAB. [Suspect]
     Active Substance: PERTUZUMAB
     Indication: BREAST CANCER
     Dosage: 840 MILLIGRAM, Q3WK
     Route: 042
     Dates: start: 20170524, end: 20170524
  65. XELODA [Concomitant]
     Active Substance: CAPECITABINE
     Dosage: 1300 MILLIGRAM
     Route: 048
     Dates: start: 20201020
  66. CEFTRIAXONE. [Concomitant]
     Active Substance: CEFTRIAXONE
     Dosage: 2 GRAM, QD
     Route: 042
     Dates: start: 20200925, end: 20200927
  67. VANCOMYCIN [Concomitant]
     Active Substance: VANCOMYCIN
     Indication: CLOSTRIDIUM DIFFICILE INFECTION
     Dosage: 125 MILLIGRAM, 0.25 DAY
     Route: 048
     Dates: start: 20201030, end: 20201104
  68. CEFUROXIME. [Concomitant]
     Active Substance: CEFUROXIME
     Dosage: 250 MILLIGRAM, BID, 0.5 DAY
     Route: 048
     Dates: start: 20201028
  69. LANSOPRAZOLE. [Concomitant]
     Active Substance: LANSOPRAZOLE
     Indication: GASTRITIS
     Dosage: UNK UNK, QD
     Route: 048
     Dates: start: 20190730, end: 20190730
  70. TEICOPLANIN [Concomitant]
     Active Substance: TEICOPLANIN
     Indication: PYREXIA
     Dosage: UNK
     Route: 042
     Dates: start: 20200724, end: 20200728
  71. LOPERAMIDE [Concomitant]
     Active Substance: LOPERAMIDE
     Dosage: 1 DOSAGE FORM, AS NECESSARY
     Route: 048
     Dates: start: 20170613
  72. MEROPENEM. [Concomitant]
     Active Substance: MEROPENEM
     Indication: ABDOMINAL PAIN
     Dosage: UNK
     Route: 042
     Dates: start: 20201130, end: 20201209
  73. VITAMIN K [Concomitant]
     Active Substance: PHYTONADIONE
     Indication: DUODENAL ULCER
     Dosage: 10 MILLIGRAM
     Route: 042
     Dates: start: 20201112, end: 20201113

REACTIONS (4)
  - HER2 positive breast cancer [Fatal]
  - Neuropathy peripheral [Recovering/Resolving]
  - Coagulopathy [Recovering/Resolving]
  - Off label use [Unknown]

NARRATIVE: CASE EVENT DATE: 20190716
